FAERS Safety Report 9749469 (Version 1)
Quarter: 2013Q4

REPORT INFORMATION
  Report Type: Spontaneous
  Country: KR (occurrence: KR)
  Receive Date: 20131212
  Receipt Date: 20131212
  Transmission Date: 20140711
  Serious: Yes (Hospitalization, Other)
  Sender: FDA-Public Use
  Company Number: PHHY2013KR142401

PATIENT
  Age: 39 Year
  Sex: Female

DRUGS (7)
  1. CICLOSPORIN [Suspect]
     Indication: PROPHYLAXIS AGAINST GRAFT VERSUS HOST DISEASE
     Dosage: 5 MG, UNK
  2. METHOTREXATE [Suspect]
     Indication: PROPHYLAXIS AGAINST GRAFT VERSUS HOST DISEASE
  3. PREDNISOLONE [Suspect]
     Dosage: 5 MG, PER DAY
  4. PREDNISOLONE [Suspect]
     Dosage: 1 MG/KG, UNK
  5. PREDNISOLONE [Suspect]
     Dosage: 10 MG,PER DAY
  6. CYCLOPHOSPHAMIDE [Concomitant]
  7. THYMOGLOBULIN [Concomitant]

REACTIONS (11)
  - Nephrotic syndrome [Unknown]
  - Generalised oedema [Unknown]
  - Fatigue [Unknown]
  - Blood albumin decreased [Unknown]
  - Proteinuria [Unknown]
  - Oedema [Unknown]
  - Weight increased [Unknown]
  - Glomerulonephritis membranous [Unknown]
  - Graft versus host disease in intestine [Recovered/Resolved]
  - Cytomegalovirus colitis [Recovered/Resolved]
  - Diarrhoea [Unknown]
